FAERS Safety Report 4738581-0 (Version None)
Quarter: 2005Q3

REPORT INFORMATION
  Report Type: 
  Country: None (occurrence: None)
  Receive Date: 20050803
  Receipt Date: 20050719
  Transmission Date: 20060218
  Serious: Yes (Death, Other)
  Sender: FDA-Public Use
  Company Number: USA0507103251

PATIENT
  Age: 85 Year
  Sex: Female

DRUGS (7)
  1. HUMULIN 70/30 [Suspect]
     Indication: DIABETES MELLITUS
     Dates: start: 20040101
  2. HUMULIN N [Suspect]
     Indication: DIABETES MELLITUS
     Dates: end: 20040101
  3. EVISTA [Suspect]
     Indication: OSTEOPOROSIS
     Dates: start: 20010101
  4. PLAVIX [Concomitant]
  5. ASPIRIN [Concomitant]
  6. LASIX [Concomitant]
  7. METOPROLOL [Concomitant]

REACTIONS (1)
  - PANCREATIC CARCINOMA [None]
